FAERS Safety Report 17372483 (Version 1)
Quarter: 2020Q1

REPORT INFORMATION
  Report Type: Spontaneous
  Country: US (occurrence: US)
  Receive Date: 20200205
  Receipt Date: 20200205
  Transmission Date: 20200409
  Serious: Yes (Other)
  Sender: FDA-Public Use
  Company Number: US-JNJFOC-20200150048

PATIENT
  Sex: Male

DRUGS (1)
  1. REMICADE [Suspect]
     Active Substance: INFLIXIMAB
     Indication: RHEUMATOID ARTHRITIS
     Route: 042

REACTIONS (13)
  - Dizziness [Unknown]
  - Localised infection [Unknown]
  - Hypertension [Unknown]
  - Cellulitis [Unknown]
  - Oedema peripheral [Unknown]
  - Coordination abnormal [Unknown]
  - Diabetes mellitus [Unknown]
  - Jaundice [Unknown]
  - Anxiety [Unknown]
  - Loss of consciousness [Unknown]
  - Vision blurred [Unknown]
  - Psoriasis [Unknown]
  - Dyspnoea [Unknown]
